FAERS Safety Report 5022031-3 (Version None)
Quarter: 2006Q2

REPORT INFORMATION
  Report Type: 
  Country: None (occurrence: None)
  Receive Date: 20060501
  Receipt Date: 20050929
  Transmission Date: 20061013
  Serious: Yes (Hospitalization)
  Sender: FDA-Public Use
  Company Number: TEST00205003073

PATIENT
  Age: 44 Year
  Sex: Male
  Weight: 100 kg

DRUGS (5)
  1. ANDROGEL (TESTOSTERONE 1% GEL) [Suspect]
     Indication: BLOOD TESTOSTERONE DECREASED
     Dosage: 5 GRAM(S) QD TRANSCUTANEOUS DAILY DOSE - SEE IMAGE
     Dates: start: 20040901, end: 20050101
  2. ANDROGEL (TESTOSTERONE 1% GEL) [Suspect]
     Indication: BLOOD TESTOSTERONE DECREASED
     Dosage: 5 GRAM(S) QD TRANSCUTANEOUS DAILY DOSE - SEE IMAGE
     Dates: start: 20050101
  3. ZOLOFT [Concomitant]
  4. IBUPROFEN [Concomitant]
  5. ACIPHEX [Concomitant]

REACTIONS (1)
  - PROSTATE CANCER [None]
